FAERS Safety Report 9801543 (Version 1)
Quarter: 2014Q1

REPORT INFORMATION
  Report Type: Spontaneous
  Country: US (occurrence: US)
  Receive Date: 20140107
  Receipt Date: 20140107
  Transmission Date: 20141002
  Serious: No
  Sender: FDA-Public Use
  Company Number: US-GILEAD-US-CVT-100619

PATIENT
  Sex: Female

DRUGS (1)
  1. RANEXA [Suspect]
     Indication: ANGINA PECTORIS
     Route: 048

REACTIONS (7)
  - Chest pain [Unknown]
  - Pain in extremity [Unknown]
  - Feeling hot [Unknown]
  - Hyperhidrosis [Unknown]
  - Abdominal pain upper [Unknown]
  - Nausea [Unknown]
  - Constipation [Unknown]
